FAERS Safety Report 16279088 (Version 2)
Quarter: 2019Q2

REPORT INFORMATION
  Report Type: Spontaneous
  Country: IT (occurrence: IT)
  Receive Date: 20190506
  Receipt Date: 20190515
  Transmission Date: 20190711
  Serious: Yes (Hospitalization)
  Sender: FDA-Public Use
  Company Number: IT-SA-2019SA116503

PATIENT
  Age: 47 Year
  Sex: Female

DRUGS (8)
  1. TACHICAF [Suspect]
     Active Substance: ACETAMINOPHEN\CAFFEINE
     Indication: TENSION HEADACHE
     Dosage: UNK UNK, UNK
     Route: 048
  2. FLOMAX [Suspect]
     Active Substance: TAMSULOSIN HYDROCHLORIDE
     Indication: TENSION HEADACHE
     Dosage: 700 MG, QD
     Route: 048
  3. INDOMETACIN [Suspect]
     Active Substance: INDOMETHACIN
     Indication: TENSION HEADACHE
     Dosage: 25 MG, QD
     Route: 048
  4. CINNARIZINE [Suspect]
     Active Substance: CINNARIZINE
     Indication: TENSION HEADACHE
     Dosage: 25 MG, QD
     Route: 048
     Dates: start: 20150401, end: 20190408
  5. CITALOPRAM [Suspect]
     Active Substance: CITALOPRAM HYDROBROMIDE
     Indication: TENSION HEADACHE
     Dosage: 10 MG, QD
     Route: 048
     Dates: start: 20150401, end: 20190408
  6. DESOGESTREL [Suspect]
     Active Substance: DESOGESTREL
     Dosage: UNK UNK, UNK
     Route: 048
  7. KETOPROFEN. [Suspect]
     Active Substance: KETOPROFEN
     Indication: TENSION HEADACHE
     Dosage: 80 MG, QD
     Route: 048
  8. DIFMETRE [Suspect]
     Active Substance: CAFFEINE\INDOMETHACIN\PROCHLORPERAZINE MALEATE
     Indication: TENSION HEADACHE
     Dosage: 100 MG, QD
     Route: 054

REACTIONS (4)
  - Drug abuse [Recovering/Resolving]
  - Migraine [Recovering/Resolving]
  - Intentional product misuse [Unknown]
  - Headache [Recovering/Resolving]

NARRATIVE: CASE EVENT DATE: 20190402
